FAERS Safety Report 7509032-8 (Version None)
Quarter: 2011Q2

REPORT INFORMATION
  Report Type: 
  Country: None (occurrence: None)
  Receive Date: 20110527
  Receipt Date: 20110524
  Transmission Date: 20111010
  Serious: Yes (Other)
  Sender: FDA-Public Use
  Company Number: JP-ALLERGAN-1104567US

PATIENT
  Age: 22 Year
  Sex: Female

DRUGS (19)
  1. CHINESE MEDICINE [Concomitant]
     Dosage: UNK
     Route: 048
     Dates: start: 20100501
  2. CEFAZOLIN SODIUM [Concomitant]
     Route: 048
     Dates: start: 20100907, end: 20100912
  3. IPD [Concomitant]
     Indication: DERMATITIS ATOPIC
     Dosage: 300 MG, UNK
     Route: 048
     Dates: start: 20110322
  4. XYZAL [Suspect]
     Indication: DERMATITIS ATOPIC
     Route: 048
     Dates: start: 20110217
  5. SOLITA-T NO.3 [Concomitant]
     Route: 041
     Dates: start: 20100901, end: 20100907
  6. VITAMEDIN [Concomitant]
     Route: 042
     Dates: start: 20100901, end: 20100907
  7. BLINDED BOTULINUM TOXIN TYPE A - GENERAL (9060X) [Suspect]
     Indication: HYPERHIDROSIS
     Dosage: 100 UNITS, SINGLE
     Dates: start: 20100617, end: 20100617
  8. BOTOX [Suspect]
     Indication: HYPERHIDROSIS
     Dosage: 100 UNITS, SINGLE
     Route: 030
     Dates: start: 20101130, end: 20101130
  9. KINDAVATE [Suspect]
     Indication: DERMATITIS ATOPIC
     Route: 061
     Dates: start: 20100216
  10. VEEN-D [Concomitant]
     Dosage: UNK
     Route: 041
     Dates: start: 20100901, end: 20100907
  11. ALLELOCK [Concomitant]
     Route: 048
     Dates: start: 20101104, end: 20110216
  12. PLACEBO [Suspect]
     Indication: HYPERHIDROSIS
     Dosage: 100 UNITS, SINGLE
     Dates: start: 20100617, end: 20100617
  13. VALTREX [Suspect]
     Indication: HERPES VIRUS INFECTION
     Route: 048
     Dates: start: 20110117, end: 20110121
  14. HIRUDOID [Concomitant]
     Route: 061
     Dates: start: 20100223
  15. ANTEBATE [Concomitant]
     Route: 061
     Dates: start: 20100216
  16. PROPETO [Concomitant]
     Dosage: UNK
     Route: 061
     Dates: start: 20100216
  17. FULMETA [Concomitant]
     Route: 061
     Dates: start: 20101005
  18. DERMOVATE [Concomitant]
     Indication: DERMATITIS ATOPIC
     Dosage: UNK
     Route: 061
     Dates: start: 20110322
  19. PANSPORIN [Concomitant]
     Route: 051
     Dates: start: 20100901, end: 20100907

REACTIONS (2)
  - SELECTIVE ABORTION [None]
  - PREGNANCY [None]
